FAERS Safety Report 5138372-5 (Version None)
Quarter: 2006Q4

REPORT INFORMATION
  Report Type: 
  Country: None (occurrence: None)
  Receive Date: 20061030
  Receipt Date: 20060914
  Transmission Date: 20070319
  Serious: Yes (Death)
  Sender: FDA-Public Use
  Company Number: JP-AVENTIS-200612863JP

PATIENT
  Age: 76 Year
  Sex: Male
  Weight: 46.4 kg

DRUGS (2)
  1. TAXOTERE [Suspect]
     Indication: LUNG SQUAMOUS CELL CARCINOMA STAGE UNSPECIFIED
     Route: 041
     Dates: start: 20060510, end: 20060510
  2. TAXOTERE [Suspect]
     Route: 041
     Dates: start: 20060602, end: 20060602

REACTIONS (4)
  - CARDIAC FAILURE [None]
  - INTERSTITIAL LUNG DISEASE [None]
  - PYREXIA [None]
  - WHITE BLOOD CELL COUNT DECREASED [None]
